FAERS Safety Report 17295126 (Version 4)
Quarter: 2025Q2

REPORT INFORMATION
  Report Type: Spontaneous
  Country: US (occurrence: US)
  Receive Date: 20200121
  Receipt Date: 20250505
  Transmission Date: 20250716
  Serious: Yes (Other)
  Sender: TEVA
  Company Number: US-TEVA-2020-US-1171072

PATIENT
  Age: 60 Year
  Sex: Female

DRUGS (9)
  1. NORTRIPTYLINE [Suspect]
     Active Substance: NORTRIPTYLINE
     Indication: Bipolar II disorder
     Route: 065
     Dates: start: 201410
  2. NORTRIPTYLINE [Suspect]
     Active Substance: NORTRIPTYLINE
     Indication: Bipolar II disorder
     Route: 065
     Dates: start: 201502
  3. NORTRIPTYLINE [Suspect]
     Active Substance: NORTRIPTYLINE
     Indication: Bipolar II disorder
     Route: 065
     Dates: end: 201507
  4. LITHIUM CARBONATE [Suspect]
     Active Substance: LITHIUM CARBONATE
     Indication: Bipolar II disorder
     Dosage: DOSAGE TEXT: MAINTENANCE TREATMENT
     Route: 065
  5. LITHIUM CARBONATE [Suspect]
     Active Substance: LITHIUM CARBONATE
     Indication: Bipolar II disorder
     Route: 065
  6. MAPROTILINE [Concomitant]
     Active Substance: MAPROTILINE
     Indication: Bipolar II disorder
     Route: 065
  7. DIVALPROEX SODIUM [Concomitant]
     Active Substance: DIVALPROEX SODIUM
     Indication: Bipolar II disorder
     Route: 065
     Dates: start: 201509, end: 201605
  8. PREDNISONE [Suspect]
     Active Substance: PREDNISONE
     Indication: Hypersensitivity
     Route: 065
  9. LAMOTRIGINE [Suspect]
     Active Substance: LAMOTRIGINE
     Indication: Bipolar II disorder
     Route: 065

REACTIONS (4)
  - Bipolar II disorder [Recovered/Resolved]
  - Hypothyroidism [Recovered/Resolved]
  - Depressed mood [Unknown]
  - Drug intolerance [Unknown]
